FAERS Safety Report 10083050 (Version 1)
Quarter: 2014Q2

REPORT INFORMATION
  Report Type: Spontaneous
  Country: US (occurrence: US)
  Receive Date: 20140417
  Receipt Date: 20140417
  Transmission Date: 20141212
  Serious: No
  Sender: FDA-Public Use
  Company Number: US-BIOGENIDEC-2014BI035641

PATIENT
  Age: 43 Year
  Sex: Female

DRUGS (1)
  1. TYSABRI [Suspect]
     Indication: MULTIPLE SCLEROSIS
     Route: 042
     Dates: start: 20080728

REACTIONS (7)
  - Gait disturbance [Recovered/Resolved]
  - Fall [Recovered/Resolved]
  - General symptom [Recovered/Resolved]
  - Bladder disorder [Recovered/Resolved]
  - Drug intolerance [Recovered/Resolved]
  - Drug specific antibody present [Recovered/Resolved]
  - Multiple sclerosis [Recovered/Resolved]
